FAERS Safety Report 8607663-5 (Version None)
Quarter: 2012Q3

REPORT INFORMATION
  Report Type: 
  Country: None (occurrence: None)
  Receive Date: 20120821
  Receipt Date: 20120810
  Transmission Date: 20120928
  Serious: No
  Sender: FDA-Public Use
  Company Number: US-JNJFOC-20120806180

PATIENT
  Sex: Female

DRUGS (1)
  1. INVEGA SUSTENNA [Suspect]
     Indication: BIPOLAR DISORDER
     Route: 030
     Dates: start: 20120809

REACTIONS (3)
  - SYRINGE ISSUE [None]
  - DEVICE LEAKAGE [None]
  - DRUG DOSE OMISSION [None]
